FAERS Safety Report 9496203 (Version 1)
Quarter: 2013Q3

REPORT INFORMATION
  Report Type: Spontaneous
  Country: DE (occurrence: None)
  Receive Date: 20130829
  Receipt Date: 20130829
  Transmission Date: 20140515
  Serious: Yes (Congenital Anomaly)
  Sender: FDA-Public Use
  Company Number: NSR_01234_2013

PATIENT
  Sex: Male

DRUGS (4)
  1. ALLOPURINOL [Suspect]
     Indication: PRODUCT USED FOR UNKNOWN INDICATION
     Route: 064
  2. HYDROCHLOROTHIAZIDE [Concomitant]
  3. PYRIDOXINE [Concomitant]
  4. SODIUM CARBONATE [Concomitant]

REACTIONS (12)
  - Cleft lip and palate [None]
  - Low set ears [None]
  - Conductive deafness [None]
  - Retrognathia [None]
  - Microphthalmos [None]
  - Hepatosplenomegaly [None]
  - Cholestasis [None]
  - Renal hypoplasia [None]
  - Cryptorchism [None]
  - Micropenis [None]
  - Osteopenia [None]
  - Maternal drugs affecting foetus [None]
